FAERS Safety Report 10472286 (Version 1)
Quarter: 2014Q3

REPORT INFORMATION
  Report Type: Spontaneous
  Country: US (occurrence: None)
  Receive Date: 20140923
  Receipt Date: 20140923
  Transmission Date: 20150326
  Serious: No
  Sender: FDA-Public Use
  Company Number: None

PATIENT
  Age: 16 Year
  Sex: Male
  Weight: 63.7 kg

DRUGS (11)
  1. EMEND [Suspect]
     Active Substance: APREPITANT
     Indication: NAUSEA
     Route: 042
     Dates: start: 20140825, end: 20140825
  2. CHLORHEXIDINE [Concomitant]
     Active Substance: CHLORHEXIDINE
  3. EMEND [Suspect]
     Active Substance: APREPITANT
     Indication: VOMITING
     Route: 042
     Dates: start: 20140825, end: 20140825
  4. 1/2 NS WITH 20 MEQ KCL [Concomitant]
     Active Substance: POTASSIUM CHLORIDE\SODIUM CHLORIDE
  5. BACTRIM [Concomitant]
     Active Substance: SULFAMETHOXAZOLE\TRIMETHOPRIM
  6. PREDNISONE. [Concomitant]
     Active Substance: PREDNISONE
  7. ETOPOSIDE. [Concomitant]
     Active Substance: ETOPOSIDE
  8. ANAPHYLAXIS [Concomitant]
  9. EPINEPHRINE. [Concomitant]
     Active Substance: EPINEPHRINE
  10. BENADRYL [Concomitant]
     Active Substance: DIPHENHYDRAMINE HYDROCHLORIDE
  11. MAGIC MOUTHWASH [Concomitant]
     Active Substance: DIPHENHYDRAMINE HYDROCHLORIDE\LIDOCAINE HYDROCHLORIDE\NYSTATIN

REACTIONS (3)
  - Flushing [None]
  - Abdominal pain [None]
  - Chest discomfort [None]

NARRATIVE: CASE EVENT DATE: 20140825
